FAERS Safety Report 22376795 (Version 2)
Quarter: 2023Q2

REPORT INFORMATION
  Report Type: Spontaneous
  Country: US (occurrence: US)
  Receive Date: 20230528
  Receipt Date: 20230620
  Transmission Date: 20230721
  Serious: Yes (Death, Other)
  Sender: FDA-Public Use
  Company Number: US-ALXN-A202306992

PATIENT
  Age: 64 Year
  Sex: Male

DRUGS (1)
  1. SOLIRIS [Suspect]
     Active Substance: ECULIZUMAB
     Indication: Atypical haemolytic uraemic syndrome
     Dosage: UNK
     Route: 065

REACTIONS (7)
  - Diffuse large B-cell lymphoma [Fatal]
  - Seizure [Fatal]
  - Haemorrhage intracranial [Fatal]
  - Vasogenic cerebral oedema [Fatal]
  - Intracranial mass [Fatal]
  - Neutropenia [Unknown]
  - Drug effect less than expected [Unknown]
